FAERS Safety Report 9599961 (Version 2)
Quarter: 2013Q4

REPORT INFORMATION
  Report Type: Spontaneous
  Country: US (occurrence: US)
  Receive Date: 20131004
  Receipt Date: 20131004
  Transmission Date: 20140711
  Serious: No
  Sender: FDA-Public Use
  Company Number: US-AMGEN-USASP2013023777

PATIENT
  Age: 53 Year
  Sex: Female
  Weight: 70.3 kg

DRUGS (5)
  1. ENBREL [Suspect]
     Indication: PRODUCT USED FOR UNKNOWN INDICATION
     Dosage: 50 MG, 2 TIMES/WK
     Route: 058
     Dates: start: 2013
  2. XANAX [Concomitant]
     Dosage: 1 MG, UNK
  3. AVAGE [Concomitant]
     Dosage: UNK
  4. HUMIRA [Concomitant]
     Dosage: 40 MG/0.8
  5. CALCIUM [Concomitant]
     Dosage: 500 MG, UNK

REACTIONS (2)
  - Limb discomfort [Unknown]
  - Drug ineffective [Unknown]
